FAERS Safety Report 9415084 (Version 2)
Quarter: 2014Q1

REPORT INFORMATION
  Report Type: Report from Study
  Country: US (occurrence: US)
  Receive Date: 20130723
  Receipt Date: 20140226
  Transmission Date: 20141002
  Serious: Yes (Other)
  Sender: FDA-Public Use
  Company Number: PHEH2013US008112

PATIENT
  Age: 51 Year
  Sex: Female
  Weight: 95 kg

DRUGS (2)
  1. GILENYA [Suspect]
     Indication: MULTIPLE SCLEROSIS
     Dosage: 0.5 MG, QD
     Route: 048
     Dates: start: 20130405
  2. AMPHETAMINE [Concomitant]

REACTIONS (12)
  - Fall [Not Recovered/Not Resolved]
  - Hip fracture [Not Recovered/Not Resolved]
  - Micturition urgency [Recovering/Resolving]
  - Balance disorder [Not Recovered/Not Resolved]
  - Urethritis noninfective [Recovering/Resolving]
  - Fatigue [Not Recovered/Not Resolved]
  - Visual impairment [Not Recovered/Not Resolved]
  - Gait disturbance [Recovering/Resolving]
  - Dizziness postural [Recovered/Resolved]
  - Asthenia [Recovering/Resolving]
  - Back pain [Not Recovered/Not Resolved]
  - Depression [Not Recovered/Not Resolved]
